FAERS Safety Report 10405985 (Version 2)
Quarter: 2014Q3

REPORT INFORMATION
  Report Type: Spontaneous
  Country: GB (occurrence: GB)
  Receive Date: 20140825
  Receipt Date: 20140929
  Transmission Date: 20150326
  Serious: Yes (Other)
  Sender: FDA-Public Use
  Company Number: GB-BAYER-2014-120432

PATIENT
  Age: 22 Year
  Sex: Female

DRUGS (2)
  1. CANESTEN COMBI 500MG PESSARY + 2% CREAM [Suspect]
     Active Substance: CLOTRIMAZOLE\HYDROCORTISONE
     Indication: VULVOVAGINAL CANDIDIASIS
     Dosage: UNK
     Dates: start: 20140809, end: 20140809
  2. CANESTEN COMBI 500MG PESSARY + 2% CREAM [Suspect]
     Active Substance: CLOTRIMAZOLE\HYDROCORTISONE
     Indication: VULVOVAGINAL CANDIDIASIS
     Dosage: UNK
     Dates: start: 201408

REACTIONS (3)
  - Haemorrhage [Recovered/Resolved]
  - Abdominal pain upper [Recovered/Resolved]
  - Headache [Recovered/Resolved]

NARRATIVE: CASE EVENT DATE: 20140810
